FAERS Safety Report 22687150 (Version 3)
Quarter: 2024Q1

REPORT INFORMATION
  Report Type: Report from Study
  Country: DE (occurrence: DE)
  Receive Date: 20230710
  Receipt Date: 20240110
  Transmission Date: 20240409
  Serious: Yes (Hospitalization)
  Sender: FDA-Public Use
  Company Number: DE-SA-SAC20230704001091

PATIENT
  Age: 53 Year
  Sex: Male
  Weight: 78.9 kg

DRUGS (14)
  1. ISATUXIMAB [Suspect]
     Active Substance: ISATUXIMAB
     Indication: Plasma cell myeloma
     Dosage: 820 MG
     Route: 042
     Dates: start: 20220404, end: 20220404
  2. ISATUXIMAB [Suspect]
     Active Substance: ISATUXIMAB
     Dosage: 820 MG
     Route: 042
     Dates: start: 20230605, end: 20230605
  3. ISATUXIMAB [Suspect]
     Active Substance: ISATUXIMAB
     Dosage: 820 MG
     Route: 042
     Dates: start: 20231227, end: 20231227
  4. CARFILZOMIB [Suspect]
     Active Substance: CARFILZOMIB
     Indication: Plasma cell myeloma
     Dosage: 144 MG
     Route: 042
     Dates: start: 20220404, end: 20220404
  5. CARFILZOMIB [Suspect]
     Active Substance: CARFILZOMIB
     Dosage: 144 MG
     Route: 042
     Dates: start: 20230605, end: 20230605
  6. CARFILZOMIB [Suspect]
     Active Substance: CARFILZOMIB
     Dosage: 140 MG
     Route: 042
     Dates: start: 20231227, end: 20231227
  7. LENALIDOMIDE [Suspect]
     Active Substance: LENALIDOMIDE
     Indication: Plasma cell myeloma
     Dosage: 15 MG
     Route: 048
     Dates: start: 20220404, end: 20220404
  8. LENALIDOMIDE [Suspect]
     Active Substance: LENALIDOMIDE
     Dosage: 15 MG
     Route: 048
     Dates: start: 20230618, end: 20230618
  9. LENALIDOMIDE [Suspect]
     Active Substance: LENALIDOMIDE
     Dosage: 15 MG
     Route: 048
     Dates: start: 20231231, end: 20231231
  10. DEXAMETHASONE [Concomitant]
     Active Substance: DEXAMETHASONE
     Indication: Plasma cell myeloma
     Dosage: 8 MG
     Route: 042
     Dates: start: 20220404, end: 20220404
  11. DEXAMETHASONE [Concomitant]
     Active Substance: DEXAMETHASONE
     Dosage: 8 MG
     Route: 042
     Dates: start: 20230605, end: 20230605
  12. DEXAMETHASONE [Concomitant]
     Active Substance: DEXAMETHASONE
     Dosage: 8 UNK
     Route: 042
     Dates: start: 20231227, end: 20231227
  13. ASPIRIN [Concomitant]
     Active Substance: ASPIRIN
     Dosage: 100 MG
     Route: 048
  14. ACICLO [Concomitant]
     Dosage: 400 MG
     Route: 048

REACTIONS (2)
  - Pneumonitis [Recovered/Resolved]
  - Pneumonia influenzal [Not Recovered/Not Resolved]

NARRATIVE: CASE EVENT DATE: 20230630
